FAERS Safety Report 22399192 (Version 1)
Quarter: 2023Q2

REPORT INFORMATION
  Report Type: Spontaneous
  Country: CN (occurrence: CN)
  Receive Date: 20230602
  Receipt Date: 20230602
  Transmission Date: 20230721
  Serious: Yes (Other)
  Sender: FDA-Public Use
  Company Number: CN-ELI_LILLY_AND_COMPANY-CN202305017889

PATIENT
  Age: 45 Year
  Sex: Male
  Weight: 110 kg

DRUGS (3)
  1. DULAGLUTIDE [Suspect]
     Active Substance: DULAGLUTIDE
     Indication: Type 2 diabetes mellitus
     Dosage: 1.5 MG, WEEKLY (1/W)
     Route: 058
     Dates: start: 20230427, end: 20230427
  2. DULAGLUTIDE [Suspect]
     Active Substance: DULAGLUTIDE
     Indication: Obesity
  3. DULAGLUTIDE [Suspect]
     Active Substance: DULAGLUTIDE
     Indication: Insulin resistance

REACTIONS (4)
  - Blood glucose decreased [Recovering/Resolving]
  - Nausea [Recovering/Resolving]
  - Decreased appetite [Recovering/Resolving]
  - Diarrhoea [Recovering/Resolving]

NARRATIVE: CASE EVENT DATE: 20230429
